FAERS Safety Report 12357230 (Version 1)
Quarter: 2016Q2

REPORT INFORMATION
  Report Type: Report from Study
  Country: JO (occurrence: JO)
  Receive Date: 20160511
  Receipt Date: 20160511
  Transmission Date: 20160815
  Serious: Yes (Death)
  Sender: FDA-Public Use
  Company Number: JO-BAUSCH-DSA_59948_2012

PATIENT
  Age: 50 Year
  Sex: Male

DRUGS (9)
  1. LEUCOVORIN. [Suspect]
     Active Substance: LEUCOVORIN
     Indication: COLORECTAL CANCER METASTATIC
     Dosage: EVERY CYCLE
     Route: 042
     Dates: start: 20110122, end: 20110122
  2. CELEBREX [Concomitant]
     Active Substance: CELECOXIB
     Indication: PRODUCT USED FOR UNKNOWN INDICATION
  3. PANADOL [Concomitant]
     Active Substance: ACETAMINOPHEN
     Indication: PRODUCT USED FOR UNKNOWN INDICATION
  4. 5-FU-FLUOROURACIL [Suspect]
     Active Substance: FLUOROURACIL
     Indication: COLORECTAL CANCER METASTATIC
     Dosage: EVERY CYCLE
     Route: 042
     Dates: start: 20110122, end: 20110122
  5. LEUCOVORIN. [Suspect]
     Active Substance: LEUCOVORIN
     Dosage: EVERY CYCLE
     Route: 042
     Dates: start: 20110730, end: 20110730
  6. ELOXATIN [Suspect]
     Active Substance: OXALIPLATIN
     Dosage: EVERY CYCLE
     Route: 042
     Dates: start: 20110730, end: 20110730
  7. 5-FU-FLUOROURACIL [Suspect]
     Active Substance: FLUOROURACIL
     Dosage: EVERY CYCLE
     Route: 042
     Dates: start: 20110730, end: 20110730
  8. 5-FU-FLUOROURACIL [Suspect]
     Active Substance: FLUOROURACIL
     Dosage: EVERY CYCLE
     Route: 042
     Dates: start: 20110730, end: 20110730
  9. ELOXATIN [Suspect]
     Active Substance: OXALIPLATIN
     Indication: COLORECTAL CANCER METASTATIC
     Dosage: EVERY CYCLE
     Route: 042
     Dates: start: 20110122, end: 20110122

REACTIONS (4)
  - Chills [None]
  - Pelvic pain [None]
  - Pyrexia [None]
  - General physical health deterioration [Fatal]

NARRATIVE: CASE EVENT DATE: 20120610
